FAERS Safety Report 11336907 (Version 3)
Quarter: 2017Q4

REPORT INFORMATION
  Report Type: Spontaneous
  Country: US (occurrence: US)
  Receive Date: 20150804
  Receipt Date: 20171130
  Transmission Date: 20180320
  Serious: No
  Sender: FDA-Public Use
  Company Number: US-PFIZER INC-2015257068

PATIENT
  Age: 62 Year
  Sex: Female
  Weight: 52 kg

DRUGS (8)
  1. LONOX [Concomitant]
     Active Substance: ATROPINE SULFATE\DIPHENOXYLATE HYDROCHLORIDE
     Dosage: UNK
  2. PREVACID [Concomitant]
     Active Substance: LANSOPRAZOLE
     Dosage: 30 MG, UNK
  3. MINOCYCLINE [Concomitant]
     Active Substance: MINOCYCLINE\MINOCYCLINE HYDROCHLORIDE
     Indication: ACNE
     Dosage: UNK
  4. LOPERAMIDE [Concomitant]
     Active Substance: LOPERAMIDE
     Indication: COLITIS MICROSCOPIC
     Dosage: UNK
  5. ATROPINE SULFATE/DIPHENOXYLATE HYDROCHLORIDE [Suspect]
     Active Substance: ATROPINE SULFATE\DIPHENOXYLATE HYDROCHLORIDE
     Dosage: UNK
  6. PROVIGIL [Concomitant]
     Active Substance: MODAFINIL
     Indication: SLEEP DISORDER
     Dosage: UNK
  7. IMODIUM [Concomitant]
     Active Substance: LOPERAMIDE HYDROCHLORIDE
     Indication: COLITIS MICROSCOPIC
     Dosage: UNK
  8. PEPTO-BISMOL [Concomitant]
     Active Substance: BISMUTH SUBSALICYLATE
     Indication: COLITIS MICROSCOPIC
     Dosage: UNK

REACTIONS (4)
  - Reaction to excipient [None]
  - Expired product administered [Unknown]
  - Product substitution issue [None]
  - Drug ineffective [Unknown]
